FAERS Safety Report 15390748 (Version 1)
Quarter: 2018Q3

REPORT INFORMATION
  Report Type: Spontaneous
  Country: US (occurrence: US)
  Receive Date: 20180910
  Receipt Date: 20180910
  Transmission Date: 20181010
  Serious: Yes (Disabling)
  Sender: FDA-Public Use
  Company Number: None

PATIENT
  Age: 32 Year
  Sex: Female
  Weight: 51.75 kg

DRUGS (1)
  1. DEXTROAMPHETAMINE SULFATE EXTENDED?RELEASE CAPSULES [Suspect]
     Active Substance: DEXTROAMPHETAMINE SULFATE
     Indication: NARCOLEPSY
     Dosage: ?          QUANTITY:90 DF DOSAGE FORM;?
     Route: 048

REACTIONS (2)
  - Drug effect decreased [None]
  - Muscular weakness [None]

NARRATIVE: CASE EVENT DATE: 20180906
